FAERS Safety Report 7043722-9 (Version None)
Quarter: 2010Q4

REPORT INFORMATION
  Report Type: 
  Country: None (occurrence: None)
  Receive Date: 20101013
  Receipt Date: 20101006
  Transmission Date: 20110411
  Serious: Yes (Hospitalization)
  Sender: FDA-Public Use
  Company Number: JP-ACTELION-A-CH2010-40454

PATIENT
  Sex: Male
  Weight: 57 kg

DRUGS (16)
  1. BOSENTAN TABLET 62.5 MG JPN [Suspect]
     Indication: PULMONARY ARTERIAL HYPERTENSION
     Dosage: 125 MG, BID
     Route: 048
     Dates: start: 20100722
  2. BOSENTAN TABLET 62.5 MG JPN [Suspect]
     Dosage: 62.5 MG, BID
     Route: 048
     Dates: start: 20100617, end: 20100721
  3. CLOPIDOGREL BISULFATE [Suspect]
     Dosage: UNK , UNK
     Dates: start: 20100711, end: 20100724
  4. WARFARIN POTASSIUM [Concomitant]
  5. AZOSEMIDE [Concomitant]
  6. ASPIRIN [Concomitant]
  7. CILOSTAZOL [Concomitant]
  8. SARPOGRELATE HYDROCHLORIDE [Concomitant]
  9. LANSOPRAZOLE [Concomitant]
  10. TAMSULOSIN HYDROCHLORIDE [Concomitant]
  11. MAGNESIUM OXIDE [Concomitant]
  12. CARBOCISTEINE [Concomitant]
  13. ALLOPURINOL [Concomitant]
  14. TULOBUTEROL [Concomitant]
  15. TIOTROPIUM BROMIDE [Concomitant]
  16. OXYGEN [Concomitant]

REACTIONS (2)
  - DRUG INTERACTION [None]
  - HEPATITIS [None]
